FAERS Safety Report 8816683 (Version 1)
Quarter: 2012Q4

REPORT INFORMATION
  Report Type: Spontaneous
  Country: US (occurrence: None)
  Receive Date: 20120928
  Receipt Date: 20120928
  Transmission Date: 20130627
  Serious: Yes (Hospitalization)
  Sender: FDA-Public Use
  Company Number: ACO_32083_2012

PATIENT
  Age: 57 Year
  Sex: Male

DRUGS (6)
  1. AMPYRA [Suspect]
     Indication: GAIT DISTURBANCE
     Route: 048
     Dates: start: 201112
  2. VALIUM [Concomitant]
  3. TYSABRI (NATALIZUMAB) [Concomitant]
  4. LORAZEPAM (LORAZEPAM) [Concomitant]
  5. METOPROLOL (METOPROLOL) [Concomitant]
  6. LIPITOR (ATROVASTATIN CALCIUM) [Concomitant]

REACTIONS (4)
  - Fall [None]
  - Hip fracture [None]
  - Muscle spasms [None]
  - Balance disorder [None]
